FAERS Safety Report 16265127 (Version 1)
Quarter: 2019Q2

REPORT INFORMATION
  Report Type: Report from Study
  Country: US (occurrence: US)
  Receive Date: 20190502
  Receipt Date: 20190502
  Transmission Date: 20190711
  Serious: No
  Sender: FDA-Public Use
  Company Number: US-RETROPHIN, INC.-2019RTN00001

PATIENT
  Age: 7 Month
  Sex: Female

DRUGS (3)
  1. CHOLBAM [Suspect]
     Active Substance: CHOLIC ACID
     Indication: ENZYME ABNORMALITY
     Dosage: 50 MG, 1X/DAY
     Dates: start: 20181213, end: 201812
  2. CHOLBAM [Suspect]
     Active Substance: CHOLIC ACID
     Dosage: 50 MG, EVERY 48 HOURS
     Dates: start: 201812, end: 201903
  3. CHOLBAM [Suspect]
     Active Substance: CHOLIC ACID
     Dosage: 50 MG, 1X/DAY
     Dates: start: 201903

REACTIONS (4)
  - Diarrhoea [Recovered/Resolved]
  - Nasopharyngitis [Unknown]
  - Frequent bowel movements [Recovered/Resolved]
  - Constipation [Not Recovered/Not Resolved]

NARRATIVE: CASE EVENT DATE: 201812
